FAERS Safety Report 13481452 (Version 2)
Quarter: 2019Q3

REPORT INFORMATION
  Report Type: Report from Study
  Country: KR (occurrence: KR)
  Receive Date: 20170425
  Receipt Date: 20190805
  Transmission Date: 20191004
  Serious: Yes (Hospitalization, Other)
  Sender: FDA-Public Use
  Company Number: KR-B.I. PHARMACEUTICALS,INC./RIDGEFIELD-2017-BI-019483

PATIENT
  Age: 75 Year
  Sex: Female
  Weight: 51 kg

DRUGS (30)
  1. MUCOSTA [Concomitant]
     Active Substance: REBAMIPIDE
     Indication: GASTRITIS PROPHYLAXIS
  2. SEPTRIN [Concomitant]
     Active Substance: SULFAMETHOXAZOLE\TRIMETHOPRIM
     Indication: PROPHYLAXIS
     Dosage: 1 TABLET
     Route: 065
     Dates: start: 20170420, end: 20170424
  3. LEGALON [Concomitant]
     Active Substance: DIETARY SUPPLEMENT\HERBALS\MILK THISTLE
     Indication: HEPATITIS TOXIC
     Route: 065
     Dates: start: 20170424, end: 20170427
  4. GILOTRIF [Suspect]
     Active Substance: AFATINIB
     Route: 048
     Dates: start: 20170502
  5. SELBEX [Concomitant]
     Active Substance: TEPRENONE
     Indication: GASTRITIS PROPHYLAXIS
     Route: 065
     Dates: start: 20170403
  6. DOXYCYCLINE. [Concomitant]
     Active Substance: DOXYCYCLINE
     Indication: PARONYCHIA
     Route: 065
     Dates: start: 20170403
  7. GILOTRIF [Suspect]
     Active Substance: AFATINIB
     Indication: NON-SMALL CELL LUNG CANCER
     Route: 048
     Dates: start: 20161219, end: 20170209
  8. MUCOSTA [Concomitant]
     Active Substance: REBAMIPIDE
     Indication: CEREBRAL ARTERY STENOSIS
     Route: 065
     Dates: start: 20161222
  9. SOLONDO [Concomitant]
     Active Substance: PREDNISOLONE
     Route: 065
     Dates: start: 20170420
  10. LOPERAMIDE [Concomitant]
     Active Substance: LOPERAMIDE
     Indication: DIARRHOEA
     Route: 065
     Dates: start: 20170315
  11. LACTICARE HC [Concomitant]
     Indication: RASH
  12. LIPITOR [Concomitant]
     Active Substance: ATORVASTATIN CALCIUM
     Indication: CEREBRAL ARTERY STENOSIS
     Route: 065
     Dates: start: 20161222
  13. PLAVIX [Concomitant]
     Active Substance: CLOPIDOGREL BISULFATE
     Indication: CEREBRAL ARTERY STENOSIS
     Route: 065
     Dates: start: 20161222
  14. ITRA [Concomitant]
     Indication: PROPHYLAXIS
     Route: 065
     Dates: start: 20170420, end: 20170424
  15. ITRA [Concomitant]
     Indication: PNEUMONIA
  16. ARESTAL [Concomitant]
     Active Substance: LOPERAMIDE OXIDE
     Indication: PROPHYLAXIS AGAINST DIARRHOEA
     Route: 065
     Dates: start: 20161219
  17. BEAROBAN [Concomitant]
     Indication: PARONYCHIA
     Route: 065
     Dates: start: 20170403
  18. SOLONDO [Concomitant]
     Active Substance: PREDNISOLONE
     Indication: ORGANISING PNEUMONIA
     Route: 065
     Dates: start: 20170406, end: 20170419
  19. EFFEXIN [Concomitant]
     Indication: EPISTAXIS
     Route: 065
     Dates: start: 20170118
  20. DEXILANT [Concomitant]
     Active Substance: DEXLANSOPRAZOLE
     Indication: GASTRITIS PROPHYLAXIS
     Route: 065
     Dates: start: 20170420
  21. SEPTRIN [Concomitant]
     Active Substance: SULFAMETHOXAZOLE\TRIMETHOPRIM
     Indication: PNEUMONIA
  22. LACTICARE HC [Concomitant]
     Indication: PROPHYLAXIS
     Dosage: 1%
     Route: 065
     Dates: start: 20161219
  23. ETRAVIL [Concomitant]
     Active Substance: AMITRIPTYLINE HYDROCHLORIDE
     Indication: CEREBRAL ARTERY STENOSIS
     Route: 065
     Dates: start: 20161222
  24. M-COBAL [Concomitant]
     Indication: CEREBRAL ARTERY STENOSIS
     Route: 065
     Dates: start: 20161222
  25. GASMOTIN [Concomitant]
     Active Substance: MOSAPRIDE CITRATE
     Indication: GASTRITIS PROPHYLAXIS
     Route: 065
     Dates: start: 20170403
  26. GILOTRIF [Suspect]
     Active Substance: AFATINIB
     Route: 048
     Dates: start: 20170210, end: 20170424
  27. TRAJENTA DUO [Concomitant]
     Active Substance: LINAGLIPTIN\METFORMIN HYDROCHLORIDE
     Indication: DIABETES MELLITUS
     Route: 065
     Dates: start: 20161222
  28. ULTRACET [Concomitant]
     Active Substance: ACETAMINOPHEN\TRAMADOL HYDROCHLORIDE
     Indication: CEREBRAL ARTERY STENOSIS
     Route: 065
     Dates: start: 20161222
  29. CRESTOR [Concomitant]
     Active Substance: ROSUVASTATIN CALCIUM
     Indication: PROPHYLAXIS
     Route: 065
     Dates: start: 20170420, end: 20170424
  30. CRESTOR [Concomitant]
     Active Substance: ROSUVASTATIN CALCIUM
     Indication: HYPERLIPIDAEMIA

REACTIONS (3)
  - Hyperglycaemia [Recovered/Resolved]
  - Hepatitis toxic [Recovered/Resolved]
  - Organising pneumonia [Recovered/Resolved]

NARRATIVE: CASE EVENT DATE: 20170403
